FAERS Safety Report 4435203-3 (Version None)
Quarter: 2004Q3

REPORT INFORMATION
  Report Type: 
  Country: None (occurrence: None)
  Receive Date: 20040827
  Receipt Date: 20040817
  Transmission Date: 20050211
  Serious: Yes (Hospitalization)
  Sender: FDA-Public Use
  Company Number: CN-BRISTOL-MYERS SQUIBB COMPANY-12677514

PATIENT
  Age: 37 Year
  Sex: Male

DRUGS (1)
  1. VELOSEF [Suspect]
     Indication: UPPER RESPIRATORY TRACT INFECTION
     Route: 041
     Dates: start: 20040714, end: 20040714

REACTIONS (3)
  - GLOMERULONEPHRITIS [None]
  - NEPHROLITHIASIS [None]
  - RENAL TUBULAR DISORDER [None]
